FAERS Safety Report 5002833-X (Version None)
Quarter: 2006Q2

REPORT INFORMATION
  Report Type: 
  Country: None (occurrence: None)
  Receive Date: 20060512
  Receipt Date: 20060425
  Transmission Date: 20061013
  Serious: Yes (Death, Hospitalization)
  Sender: FDA-Public Use
  Company Number: US200603004401

PATIENT
  Age: 82 Year
  Sex: Female

DRUGS (3)
  1. FORTEO [Suspect]
     Indication: OSTEOPOROSIS
     Dates: start: 20050701, end: 20051210
  2. FORTEO [Concomitant]
  3. OXYGEN [Concomitant]

REACTIONS (3)
  - LIMB INJURY [None]
  - PAIN [None]
  - PELVIC FRACTURE [None]
